FAERS Safety Report 9565012 (Version 2)
Quarter: 2013Q4

REPORT INFORMATION
  Report Type: Spontaneous
  Country: US (occurrence: US)
  Receive Date: 20130930
  Receipt Date: 20131106
  Transmission Date: 20140711
  Serious: Yes (Other)
  Sender: FDA-Public Use
  Company Number: US-TEVA-434590USA

PATIENT
  Age: 31 Year
  Sex: Female
  Weight: 82.63 kg

DRUGS (8)
  1. PARAGARD 380A [Suspect]
     Indication: CONTRACEPTION
     Route: 015
     Dates: start: 20130816
  2. PLAQUENIL [Concomitant]
     Indication: SYSTEMIC LUPUS ERYTHEMATOSUS
  3. COUMADIN [Concomitant]
     Indication: DEEP VEIN THROMBOSIS
  4. HYZAAR [Concomitant]
     Indication: HYPERTENSION
  5. PHENYTOIN [Concomitant]
  6. LOSARTAN [Concomitant]
  7. JANTOVEN [Concomitant]
  8. IRON [Concomitant]

REACTIONS (7)
  - Vaginal haemorrhage [Recovered/Resolved]
  - Cardiac flutter [Not Recovered/Not Resolved]
  - Palpitations [Recovered/Resolved]
  - Blood count abnormal [Not Recovered/Not Resolved]
  - Burning sensation [Recovered/Resolved]
  - Pelvic discomfort [Recovered/Resolved]
  - Device expulsion [Recovered/Resolved]
